FAERS Safety Report 17353185 (Version 4)
Quarter: 2025Q3

REPORT INFORMATION
  Report Type: Spontaneous
  Country: EU (occurrence: EU)
  Receive Date: 20200131
  Receipt Date: 20250703
  Transmission Date: 20251021
  Serious: Yes (Hospitalization, Other)
  Sender: TEVA
  Company Number: EU-EMA-DD-20200114-KORTI_S1-141338

PATIENT
  Age: 68 Year
  Sex: Male

DRUGS (3)
  1. FLUDARABINE [Suspect]
     Active Substance: FLUDARABINE PHOSPHATE
     Indication: Chemotherapy
     Route: 065
     Dates: start: 20190203
  2. CYCLOPHOSPHAMIDE [Suspect]
     Active Substance: CYCLOPHOSPHAMIDE
     Indication: Chemotherapy
     Route: 065
     Dates: start: 20190203
  3. YESCARTA [Suspect]
     Active Substance: AXICABTAGENE CILOLEUCEL
     Indication: Diffuse large B-cell lymphoma
     Route: 042
     Dates: start: 20190208, end: 20190208

REACTIONS (11)
  - Pneumonia [Unknown]
  - Neurotoxicity [Recovered/Resolved]
  - Disease progression [Unknown]
  - Cytokine storm [Recovered/Resolved]
  - Pyrexia [Recovered/Resolved]
  - Cytokine release syndrome [Unknown]
  - Bone marrow failure [Recovered/Resolved]
  - Cough [Unknown]
  - Cytopenia [Unknown]
  - Pyrexia [Recovered/Resolved]
  - Immune effector cell-associated neurotoxicity syndrome [Recovered/Resolved]

NARRATIVE: CASE EVENT DATE: 20190209
